FAERS Safety Report 7046804-0 (Version None)
Quarter: 2010Q4

REPORT INFORMATION
  Report Type: 
  Country: None (occurrence: None)
  Receive Date: 20101015
  Receipt Date: 20101012
  Transmission Date: 20110411
  Serious: Yes (Death, Hospitalization)
  Sender: FDA-Public Use
  Company Number: US-JNJFOC-20070605213

PATIENT
  Age: 49 Year
  Sex: Male

DRUGS (4)
  1. IBUPROFEN [Suspect]
  2. IBUPROFEN [Suspect]
     Indication: SUICIDE ATTEMPT
     Dosage: MAY HAVE INGESTED UP TO 120 GRAMS
  3. DEPAKOTE [Suspect]
     Indication: BIPOLAR DISORDER
  4. LEVOTHYROXINE [Concomitant]

REACTIONS (2)
  - MULTI-ORGAN FAILURE [None]
  - MULTIPLE DRUG OVERDOSE INTENTIONAL [None]
